FAERS Safety Report 23633673 (Version 1)
Quarter: 2024Q1

REPORT INFORMATION
  Report Type: Spontaneous
  Country: FR (occurrence: FR)
  Receive Date: 20240314
  Receipt Date: 20240314
  Transmission Date: 20240409
  Serious: Yes (Other)
  Sender: FDA-Public Use
  Company Number: None

PATIENT
  Age: 39 Year
  Sex: Female
  Weight: 71 kg

DRUGS (18)
  1. DOXYCYCLINE [Suspect]
     Active Substance: DOXYCYCLINE
     Indication: Boutonneuse fever
     Dosage: 1-0-1
     Route: 048
     Dates: start: 20240125, end: 20240201
  2. OXYCODONE [Suspect]
     Active Substance: OXYCODONE\OXYCODONE HYDROCHLORIDE
     Indication: Pain
     Route: 048
     Dates: start: 20240119, end: 20240129
  3. ACETAMINOPHEN [Concomitant]
     Active Substance: ACETAMINOPHEN
     Indication: Pain
     Route: 048
  4. KETAMINE HYDROCHLORIDE [Concomitant]
     Active Substance: KETAMINE HYDROCHLORIDE
     Indication: Chronic inflammatory demyelinating polyradiculoneuropathy
     Dosage: TIME INTERVAL: 1 TOTAL
     Route: 058
     Dates: start: 20231128, end: 20231128
  5. KETAMINE HYDROCHLORIDE [Concomitant]
     Active Substance: KETAMINE HYDROCHLORIDE
     Indication: Chronic inflammatory demyelinating polyradiculoneuropathy
     Dosage: TIME INTERVAL: 1 TOTAL
     Route: 058
     Dates: start: 20240102, end: 20240102
  6. ZOPICLONE [Concomitant]
     Active Substance: ZOPICLONE
     Indication: Sleep disorder
     Dosage: 0-0-1, 7.5 MG
     Route: 048
  7. ENOXAPARIN SODIUM [Concomitant]
     Active Substance: ENOXAPARIN SODIUM
     Indication: Thrombosis prophylaxis
     Dosage: ((MAMMAL/PIG/GUTTUM MUCOSA))
     Route: 058
     Dates: start: 20231116, end: 20231121
  8. ENOXAPARIN SODIUM [Concomitant]
     Active Substance: ENOXAPARIN SODIUM
     Indication: Thrombosis prophylaxis
     Dosage: ((MAMMAL/PIG/GUTTUM MUCOSA))
     Route: 058
     Dates: start: 20240119, end: 20240203
  9. GABAPENTIN [Suspect]
     Active Substance: GABAPENTIN
     Indication: Neuralgia
     Dosage: 2-1-2
     Route: 048
     Dates: start: 20231106
  10. GABAPENTIN [Suspect]
     Active Substance: GABAPENTIN
     Indication: Neuralgia
     Route: 048
     Dates: start: 20231019, end: 20231105
  11. AMITRIPTYLINE HYDROCHLORIDE [Suspect]
     Active Substance: AMITRIPTYLINE HYDROCHLORIDE
     Indication: Neuralgia
     Dosage: 40 MG/ML ?0-10 DROPS-25 DROPS
     Route: 048
  12. VENLAFAXINE HYDROCHLORIDE [Suspect]
     Active Substance: VENLAFAXINE HYDROCHLORIDE
     Indication: Neuralgia
     Dosage: 1-0-0
     Route: 048
  13. VENLAFAXINE HYDROCHLORIDE [Suspect]
     Active Substance: VENLAFAXINE HYDROCHLORIDE
     Indication: Neuralgia
     Dosage: 0-0-1, 37.5 MG
     Route: 048
     Dates: start: 20231016
  14. LEVOTHYROXINE SODIUM [Concomitant]
     Active Substance: LEVOTHYROXINE SODIUM
     Indication: Hypothyroidism
     Dosage: 1-0-0, 37.5 MG
     Route: 048
  15. PANTOPRAZOLE [Concomitant]
     Active Substance: PANTOPRAZOLE
     Indication: Oesophagitis
     Route: 042
     Dates: start: 20231113, end: 20231120
  16. PANTOPRAZOLE [Concomitant]
     Active Substance: PANTOPRAZOLE
     Indication: Oesophagitis
     Dosage: 1-0-1
     Route: 048
     Dates: start: 20231121
  17. LEVOCARNITINE [Concomitant]
     Active Substance: LEVOCARNITINE
     Indication: Nutritional supplementation
     Dosage: 1-1-1
     Route: 048
  18. MORPHINE SULFATE [Suspect]
     Active Substance: MORPHINE SULFATE
     Indication: Pain
     Dosage: 1-4/D IF PAIN
     Route: 048

REACTIONS (1)
  - Hallucination, visual [Recovered/Resolved]

NARRATIVE: CASE EVENT DATE: 20240130
